FAERS Safety Report 4462625-7 (Version None)
Quarter: 2004Q3

REPORT INFORMATION
  Report Type: 
  Country: None (occurrence: None)
  Receive Date: 20040928
  Receipt Date: 20040917
  Transmission Date: 20050211
  Serious: Yes (Hospitalization)
  Sender: FDA-Public Use
  Company Number: STA-AE-04-MTX-419

PATIENT
  Age: 62 Year
  Sex: Male

DRUGS (2)
  1. METHOTREXATE [Suspect]
     Indication: RHEUMATOID ARTHRITIS
     Dosage: 5 MG 1X PER 1 WK, ORAL
     Route: 048
     Dates: start: 19901001, end: 19930401
  2. METHOTREXATE [Suspect]
     Indication: RHEUMATOID ARTHRITIS
     Dosage: 2.5 MG 1X PER 1 WK, ORAL
     Route: 048
     Dates: start: 19930501, end: 19950101

REACTIONS (4)
  - DISEASE RECURRENCE [None]
  - NECROSIS [None]
  - RHEUMATOID FACTOR INCREASED [None]
  - RHEUMATOID NODULE [None]
